FAERS Safety Report 13580621 (Version 1)
Quarter: 2017Q2

REPORT INFORMATION
  Report Type: Spontaneous
  Country: US (occurrence: US)
  Receive Date: 20170525
  Receipt Date: 20170525
  Transmission Date: 20170830
  Serious: No
  Sender: FDA-Public Use
  Company Number: None

PATIENT
  Age: 71 Year
  Sex: Male

DRUGS (1)
  1. AMOXICILLIN/CLAVULANATE [Suspect]
     Active Substance: AMOXICILLIN\CLAVULANATE POTASSIUM
     Indication: ORAL SURGERY
     Route: 048
     Dates: start: 20170504, end: 20170508

REACTIONS (2)
  - Rash [None]
  - Angioedema [None]

NARRATIVE: CASE EVENT DATE: 20170508
